FAERS Safety Report 4653262-X (Version None)
Quarter: 2005Q2

REPORT INFORMATION
  Report Type: 
  Country: None (occurrence: None)
  Receive Date: 20050503
  Receipt Date: 20050420
  Transmission Date: 20051028
  Serious: Yes (Hospitalization)
  Sender: FDA-Public Use
  Company Number: HQWYE181122APR05

PATIENT
  Age: 64 Year
  Sex: Male

DRUGS (5)
  1. PROPRANOLOL HYDROCHLORIDE [Suspect]
     Route: 048
  2. MIGRALGINE (AMYLOCAINE HYDROCHLORIDE/CAFFEINE/CODEINE/PHENAZONE, ) [Suspect]
     Indication: MIGRAINE
     Route: 048
  3. TAHOR (ATORVASTATIN, ) [Suspect]
     Route: 048
  4. TRAVATAN [Suspect]
     Indication: GLAUCOMA
     Route: 047
  5. VASTAREL (TRIMETAZIDINE HYDROCHLORIDE, ) [Suspect]
     Route: 048

REACTIONS (2)
  - ARTERIAL THROMBOSIS [None]
  - SCOTOMA [None]
